FAERS Safety Report 14833008 (Version 1)
Quarter: 2018Q2

REPORT INFORMATION
  Report Type: Spontaneous
  Country: US (occurrence: US)
  Receive Date: 20180411
  Receipt Date: 20180411
  Transmission Date: 20180711
  Serious: Yes (Other)
  Sender: FDA-Public Use
  Company Number: None

PATIENT
  Age: 49 Year
  Sex: Female
  Weight: 87.3 kg

DRUGS (8)
  1. VITAMIN D [Concomitant]
     Active Substance: CHOLECALCIFEROL
  2. GINGKO [Concomitant]
     Active Substance: GINKGO
  3. MULTI VITAMIN [Concomitant]
     Active Substance: VITAMINS
  4. SYNTHROID [Concomitant]
     Active Substance: LEVOTHYROXINE SODIUM
  5. VITAMIN B COMPLEX [Concomitant]
     Active Substance: CYANOCOBALAMIN\DEXPANTHENOL\NIACINAMIDE\PYRIDOXINE HYDROCHLORIDE\RIBOFLAVIN 5^-PHOSPHATE SODIUM\THIAMINE HYDROCHLORIDE\VITAMIN B COMPLEX
  6. MENOPAUSE RELIEF WITH BLACK COHASH [Concomitant]
  7. PHENTERMINE. [Suspect]
     Active Substance: PHENTERMINE
     Indication: WEIGHT
     Dosage: ?          QUANTITY:1 DF DOSAGE FORM;?
     Route: 048
     Dates: start: 20171113, end: 20180410
  8. MAGNOLIA ROOT EXTRACT [Concomitant]

REACTIONS (12)
  - Thirst [None]
  - Pharyngeal oedema [None]
  - Gingival pain [None]
  - Oral pain [None]
  - Stomatitis [None]
  - Partner stress [None]
  - Dry mouth [None]
  - Paraesthesia [None]
  - Vision blurred [None]
  - Tongue discolouration [None]
  - Irritability [None]
  - Dysphagia [None]

NARRATIVE: CASE EVENT DATE: 20180409
